FAERS Safety Report 8914154 (Version 2)
Quarter: 2013Q1

REPORT INFORMATION
  Report Type: Spontaneous
  Country: US (occurrence: US)
  Receive Date: 20121119
  Receipt Date: 20130121
  Transmission Date: 20140127
  Serious: Yes (Death)
  Sender: FDA-Public Use
  Company Number: US-JNJFOC-20121107208

PATIENT
  Age: 77 Year
  Sex: Male

DRUGS (2)
  1. STELARA [Suspect]
     Indication: PSORIASIS
     Dosage: A TOTAL OF 7 DOSES
     Route: 058
  2. METHOTREXATE [Suspect]
     Indication: PSORIASIS
     Dosage: A TOTAL OF 7 DOSES
     Route: 048

REACTIONS (4)
  - Death [Fatal]
  - Guttate psoriasis [Unknown]
  - Anaemia [Unknown]
  - Blood creatinine increased [Unknown]
